FAERS Safety Report 5963210-8 (Version None)
Quarter: 2008Q4

REPORT INFORMATION
  Report Type: 
  Country: None (occurrence: None)
  Receive Date: 20081124
  Receipt Date: 20081117
  Transmission Date: 20090506
  Serious: Yes (Hospitalization)
  Sender: FDA-Public Use
  Company Number: US-JNJFOC-20081104311

PATIENT
  Sex: Male
  Weight: 88.45 kg

DRUGS (1)
  1. FENTANYL TRANSDERMAL SYSTEM [Suspect]
     Indication: GOUT
     Route: 062

REACTIONS (2)
  - APPENDICECTOMY [None]
  - WRONG TECHNIQUE IN DRUG USAGE PROCESS [None]
